FAERS Safety Report 17702998 (Version 2)
Quarter: 2020Q2

REPORT INFORMATION
  Report Type: Report from Study
  Country: US (occurrence: US)
  Receive Date: 20200424
  Receipt Date: 20200608
  Transmission Date: 20200714
  Serious: No
  Sender: FDA-Public Use
  Company Number: US-009507513-2004USA007058

PATIENT
  Age: 39 Year
  Sex: Female
  Weight: 73.02 kg

DRUGS (2)
  1. IMPLANON [Suspect]
     Active Substance: ETONOGESTREL
     Dosage: 1 ROD EVERY 3 YEAR
     Route: 059
  2. IMPLANON [Suspect]
     Active Substance: ETONOGESTREL
     Dosage: 1 ROD EVERY 3 YEAR
     Route: 059
     Dates: start: 20200422

REACTIONS (4)
  - Complication of device insertion [Not Recovered/Not Resolved]
  - Product quality issue [Unknown]
  - Device difficult to use [Not Recovered/Not Resolved]
  - Adverse event [Recovering/Resolving]

NARRATIVE: CASE EVENT DATE: 20200422
